FAERS Safety Report 10093530 (Version 1)
Quarter: 2014Q2

REPORT INFORMATION
  Report Type: Spontaneous
  Country: US (occurrence: US)
  Receive Date: 20140421
  Receipt Date: 20140421
  Transmission Date: 20141212
  Serious: No
  Sender: FDA-Public Use
  Company Number: US-SANOFI-AVENTIS-2013SA077790

PATIENT
  Age: 80 Year
  Sex: Male

DRUGS (2)
  1. ALLEGRA [Suspect]
     Indication: ACNE
     Route: 048
     Dates: start: 20130729
  2. PRELIEF [Interacting]

REACTIONS (4)
  - Anxiety [Not Recovered/Not Resolved]
  - Insomnia [Not Recovered/Not Resolved]
  - Drug ineffective [Unknown]
  - Drug interaction [Unknown]
